FAERS Safety Report 9818946 (Version 1)
Quarter: 2014Q1

REPORT INFORMATION
  Report Type: Spontaneous
  Country: US (occurrence: None)
  Receive Date: 20140114
  Receipt Date: 20140114
  Transmission Date: 20141002
  Serious: Yes (Hospitalization)
  Sender: FDA-Public Use
  Company Number: None

PATIENT
  Age: 1 Year
  Sex: Male
  Weight: 9.85 kg

DRUGS (1)
  1. DEXAMETHASONE [Suspect]
     Dates: end: 20140113

REACTIONS (11)
  - Clostridium difficile colitis [None]
  - Hypotension [None]
  - Procedural site reaction [None]
  - Rash [None]
  - Post procedural infection [None]
  - Anaemia [None]
  - Thrombocytopenia [None]
  - Drug resistance [None]
  - Bacillus test positive [None]
  - Human rhinovirus test positive [None]
  - Enterovirus test positive [None]
